FAERS Safety Report 20661103 (Version 10)
Quarter: 2022Q4

REPORT INFORMATION
  Report Type: Report from Study
  Country: JP (occurrence: JP)
  Receive Date: 20220331
  Receipt Date: 20221005
  Transmission Date: 20230113
  Serious: Yes (Hospitalization)
  Sender: FDA-Public Use
  Company Number: JP-SEATTLE GENETICS-2022SGN03158

PATIENT
  Age: 68 Year
  Sex: Male
  Weight: 66.1 kg

DRUGS (7)
  1. TUCATINIB [Suspect]
     Active Substance: TUCATINIB
     Indication: Cholangiocarcinoma
     Dosage: 300 MG, BID ON DAYS 1-21 OF EA 21 DAY CYCLE
     Route: 048
     Dates: start: 20220221, end: 20220329
  2. TRASTUZUMAB [Suspect]
     Active Substance: TRASTUZUMAB
     Indication: Cholangiocarcinoma
     Dosage: 6 MG/KG, Q3WEEKS
     Route: 042
  3. TRASTUZUMAB [Suspect]
     Active Substance: TRASTUZUMAB
     Dosage: 8 MG/KG, SINGLE
     Route: 042
     Dates: start: 20220221, end: 20220221
  4. TRASTUZUMAB [Suspect]
     Active Substance: TRASTUZUMAB
     Dosage: UNK
     Route: 042
     Dates: start: 20220221, end: 20220221
  5. ESOMEPRAZOLE MAGNESIUM [Concomitant]
     Active Substance: ESOMEPRAZOLE MAGNESIUM
     Indication: Prophylaxis against gastrointestinal ulcer
     Dosage: 10 MG, QD
     Dates: start: 202001
  6. PANCRELIPASE [Concomitant]
     Active Substance: PANCRELIPASE
     Dosage: 1800 MG, QD
     Dates: start: 202001
  7. TAMSULOSIN HYDROCHLORIDE [Concomitant]
     Active Substance: TAMSULOSIN HYDROCHLORIDE
     Indication: Benign prostatic hyperplasia
     Dosage: 0.2 MG, QD
     Dates: start: 2019

REACTIONS (1)
  - Liver disorder [Recovered/Resolved]

NARRATIVE: CASE EVENT DATE: 20220328
